FAERS Safety Report 12664632 (Version 1)
Quarter: 2016Q3

REPORT INFORMATION
  Report Type: Report from Study
  Country: BR (occurrence: BR)
  Receive Date: 20160818
  Receipt Date: 20160818
  Transmission Date: 20161109
  Serious: Yes (Hospitalization, Other)
  Sender: FDA-Public Use
  Company Number: PHHY2016BR112306

PATIENT
  Sex: Female
  Weight: 80 kg

DRUGS (3)
  1. EXELON PATCH [Suspect]
     Active Substance: RIVASTIGMINE
     Indication: MEMORY IMPAIRMENT
     Dosage: (PATCH 5CM2)
     Route: 062
     Dates: start: 201503
  2. NORIPURUM [Concomitant]
     Active Substance: IRON POLYMALTOSE
     Indication: PRODUCT USED FOR UNKNOWN INDICATION
     Route: 065
  3. INSULIN [Concomitant]
     Active Substance: INSULIN NOS
     Indication: PRODUCT USED FOR UNKNOWN INDICATION
     Route: 065

REACTIONS (8)
  - Abnormal behaviour [Unknown]
  - Drug-induced liver injury [Unknown]
  - Eating disorder [Unknown]
  - Dementia [Unknown]
  - Emotional disorder [Unknown]
  - Anaemia [Unknown]
  - Weight increased [Unknown]
  - Nervousness [Unknown]
